FAERS Safety Report 7307455-3 (Version None)
Quarter: 2011Q1

REPORT INFORMATION
  Report Type: 
  Country: None (occurrence: None)
  Receive Date: 20110223
  Receipt Date: 20110210
  Transmission Date: 20110831
  Serious: Yes (Other)
  Sender: FDA-Public Use
  Company Number: ES-PFIZER INC-2010168265

PATIENT
  Age: 85 Year
  Sex: Female

DRUGS (11)
  1. TRANGOREX [Suspect]
     Dosage: UNSPECIFIED 3 TIMES WEEKLY
     Route: 048
     Dates: start: 20100901, end: 20101020
  2. BISOPROLOL [Concomitant]
     Dosage: UNK
  3. TRANGOREX [Suspect]
     Indication: ATRIAL FIBRILLATION
     Dosage: UNK
     Route: 048
     Dates: end: 20100901
  4. ATACAND [Concomitant]
     Dosage: UNK
  5. SPIRONOLACTONE [Concomitant]
     Dosage: UNK
  6. DRONEDARONE [Suspect]
     Indication: ARRHYTHMIA PROPHYLAXIS
     Dosage: 400 MG, 2X/DAY
     Route: 048
     Dates: start: 20101107, end: 20101111
  7. SEGURIL [Concomitant]
     Dosage: UNK
     Dates: start: 20010101
  8. TRANGOREX [Suspect]
     Dosage: 300 MG, 1X/DAY
     Dates: start: 20101021, end: 20101031
  9. SOMAZINA [Concomitant]
     Dosage: UNK
  10. LEXATIN [Concomitant]
     Dosage: UNK
  11. SINTROM [Concomitant]
     Dosage: UNK
     Dates: start: 20010101

REACTIONS (11)
  - VOMITING [None]
  - HEPATITIS TOXIC [None]
  - CHOLESTATIC LIVER INJURY [None]
  - RENAL FAILURE [None]
  - ATRIAL FIBRILLATION [None]
  - ASTHENIA [None]
  - JAUNDICE [None]
  - PRURITUS [None]
  - DIARRHOEA [None]
  - ARTHRALGIA [None]
  - ABDOMINAL PAIN [None]
